FAERS Safety Report 9882415 (Version 1)
Quarter: 2014Q1

REPORT INFORMATION
  Report Type: Spontaneous
  Country: AU (occurrence: AU)
  Receive Date: 20140207
  Receipt Date: 20140207
  Transmission Date: 20141002
  Serious: Yes (Death, Other)
  Sender: FDA-Public Use
  Company Number: AU-PFIZER INC-2014032445

PATIENT
  Age: 42 Year
  Sex: Male

DRUGS (7)
  1. MORPHINE HCL [Suspect]
  2. ALPRAZOLAM [Interacting]
  3. OLANZAPINE [Interacting]
  4. CANNABIS [Interacting]
  5. CODEINE [Interacting]
  6. CYMBALTA [Interacting]
  7. HEROIN [Interacting]

REACTIONS (5)
  - Drug interaction [Fatal]
  - Toxicity to various agents [Fatal]
  - Pulmonary congestion [Not Recovered/Not Resolved]
  - Hepatitis C [Not Recovered/Not Resolved]
  - Cholelithiasis [Not Recovered/Not Resolved]
